FAERS Safety Report 12538116 (Version 1)
Quarter: 2016Q3

REPORT INFORMATION
  Report Type: Report from Study
  Country: US (occurrence: US)
  Receive Date: 20160707
  Receipt Date: 20160707
  Transmission Date: 20161109
  Serious: Yes (Hospitalization, Other)
  Sender: FDA-Public Use
  Company Number: US-BAXALTA-2016BLT004716

PATIENT
  Age: 42 Year
  Sex: Female
  Weight: 90 kg

DRUGS (1)
  1. HYQVIA [Suspect]
     Active Substance: HUMAN IMMUNOGLOBULIN G\HYALURONIDASE RECOMBINANT HUMAN
     Indication: HYPOGAMMAGLOBULINAEMIA
     Dosage: 10 G, UNK, 1ST RAMP UP
     Route: 058
     Dates: start: 20160624, end: 20160624

REACTIONS (10)
  - Vomiting [Recovering/Resolving]
  - Infusion site induration [Recovering/Resolving]
  - Infusion site pain [Recovering/Resolving]
  - Malaise [Recovering/Resolving]
  - Infusion site erythema [Recovering/Resolving]
  - Infusion site swelling [Recovering/Resolving]
  - Migraine [Recovering/Resolving]
  - Dysuria [Recovered/Resolved]
  - Infusion site warmth [Recovering/Resolving]
  - Cellulitis [Recovering/Resolving]

NARRATIVE: CASE EVENT DATE: 20160624
